FAERS Safety Report 7249622-3 (Version None)
Quarter: 2011Q1

REPORT INFORMATION
  Report Type: 
  Country: None (occurrence: None)
  Receive Date: 20110128
  Receipt Date: 20101215
  Transmission Date: 20110831
  Serious: Yes (Hospitalization, Other)
  Sender: FDA-Public Use
  Company Number: US-BAYER-201030585NA

PATIENT
  Sex: Female
  Weight: 59 kg

DRUGS (7)
  1. MINOCYCLINE HCL [Concomitant]
  2. NSAID'S [Concomitant]
  3. YASMIN [Suspect]
     Indication: ORAL CONTRACEPTION
     Dosage: UNK
     Route: 048
     Dates: start: 20030501, end: 20061201
  4. REFLEX [BENZYL ALCOH,CAMPH,DIMETHYL SULFOX,MENTHOL,METHYL SALICYL,PINU [Concomitant]
     Dosage: UNK
     Dates: start: 20061120
  5. ASCORBIC ACID [Concomitant]
     Dosage: UNK
     Dates: start: 20030101, end: 20070101
  6. YAZ [Suspect]
     Indication: ORAL CONTRACEPTION
     Dosage: UNK
     Route: 048
     Dates: start: 20030501, end: 20061201
  7. REGLAN [Concomitant]
     Dosage: UNK
     Dates: start: 20061120

REACTIONS (7)
  - DEEP VEIN THROMBOSIS [None]
  - MYOCARDIAL INFARCTION [None]
  - PULMONARY EMBOLISM [None]
  - CEREBROVASCULAR ACCIDENT [None]
  - THROMBOSIS [None]
  - GALLBLADDER DISORDER [None]
  - MENTAL DISORDER [None]
